FAERS Safety Report 21024399 (Version 1)
Quarter: 2022Q2

REPORT INFORMATION
  Report Type: Spontaneous
  Country: CN (occurrence: CN)
  Receive Date: 20220629
  Receipt Date: 20220629
  Transmission Date: 20220721
  Serious: Yes (Hospitalization, Other)
  Sender: FDA-Public Use
  Company Number: CN-ANIPHARMA-2022-CN-000162

PATIENT
  Age: 63 Year
  Sex: Male

DRUGS (3)
  1. BICALUTAMIDE [Suspect]
     Active Substance: BICALUTAMIDE
     Indication: Prostate cancer
     Dosage: 50 MG ONCE DAILY
     Route: 048
     Dates: start: 20180608, end: 202103
  2. GOSERELIN [Concomitant]
     Active Substance: GOSERELIN
     Dosage: 10.8 MG EVERY 3 MONTHS
     Route: 058
     Dates: start: 20180608, end: 202009
  3. LEUPROLIDE ACETATE [Concomitant]
     Active Substance: LEUPROLIDE ACETATE
     Dosage: 3.75 MG EVERY MONTH
     Route: 058
     Dates: start: 202009

REACTIONS (2)
  - Congestive cardiomyopathy [Recovered/Resolved]
  - Cardiac failure [Recovered/Resolved]
